FAERS Safety Report 15240548 (Version 1)
Quarter: 2018Q3

REPORT INFORMATION
  Report Type: Spontaneous
  Country: CH (occurrence: CH)
  Receive Date: 20180804
  Receipt Date: 20180804
  Transmission Date: 20181010
  Serious: Yes (Hospitalization)
  Sender: FDA-Public Use
  Company Number: CH-009507513-1808CHE000253

PATIENT
  Age: 60 Year
  Sex: Male

DRUGS (2)
  1. METHADONE HYDROCHLORIDE. [Suspect]
     Active Substance: METHADONE HYDROCHLORIDE
     Indication: MALIGNANT MELANOMA STAGE IV
     Dosage: 10 MG/ML, 30?0?30?0 DROPS DAILY
     Route: 048
  2. TEMOZOLOMIDE. [Suspect]
     Active Substance: TEMOZOLOMIDE
     Indication: MALIGNANT MELANOMA STAGE IV
     Dosage: 380 MG, QD, 200 MG/M2 BODY SURFACE AREA, 5 DAYS/CYCLE
     Route: 048

REACTIONS (1)
  - Drug ineffective [Unknown]
